FAERS Safety Report 4980217-8 (Version None)
Quarter: 2006Q2

REPORT INFORMATION
  Report Type: 
  Country: None (occurrence: None)
  Receive Date: 20060424
  Receipt Date: 20051227
  Transmission Date: 20061013
  Serious: Yes (Life-Threatening, Hospitalization)
  Sender: FDA-Public Use
  Company Number: US-GILEAD-2006-0009055

PATIENT
  Sex: Male
  Weight: 63 kg

DRUGS (17)
  1. VIREAD [Suspect]
     Indication: HIV INFECTION
     Dates: start: 20051103
  2. VIREAD [Suspect]
     Route: 048
     Dates: start: 20050406, end: 20051201
  3. TRUVADA [Suspect]
     Indication: HIV INFECTION
  4. EMTRIVA [Suspect]
     Indication: HIV INFECTION
  5. BACTRIM DS [Suspect]
     Indication: ANTIBIOTIC PROPHYLAXIS
     Route: 048
     Dates: start: 20051212
  6. BACTRIM DS [Suspect]
     Route: 048
     Dates: start: 20050406, end: 20051211
  7. KALETRA [Concomitant]
     Dates: start: 20050406
  8. FUZEON [Concomitant]
     Route: 058
     Dates: start: 20050406
  9. SUSTIVA [Concomitant]
     Route: 048
     Dates: start: 20050406
  10. VALTREX [Concomitant]
     Dates: start: 20050406
  11. DIFLUCAN [Concomitant]
     Route: 048
     Dates: start: 20050406
  12. FLONASE [Concomitant]
     Dates: start: 20050406
  13. OXANDRIN [Concomitant]
     Route: 048
     Dates: start: 20050406
  14. MYCELEX [Concomitant]
     Route: 048
     Dates: start: 20050406
  15. LORATADINE [Concomitant]
     Dates: start: 20050406
  16. AMBIEN [Concomitant]
     Route: 048
     Dates: start: 20050406
  17. LISINOPRIL [Concomitant]
     Dates: start: 20050420

REACTIONS (21)
  - ALANINE AMINOTRANSFERASE INCREASED [None]
  - ANOREXIA [None]
  - ASPARTATE AMINOTRANSFERASE INCREASED [None]
  - ATELECTASIS [None]
  - AZOTAEMIA [None]
  - BASE EXCESS [None]
  - BLOOD ALKALINE PHOSPHATASE INCREASED [None]
  - BLOOD GLUCOSE DECREASED [None]
  - BLOOD POTASSIUM INCREASED [None]
  - BLOOD SODIUM DECREASED [None]
  - DEHYDRATION [None]
  - FALL [None]
  - FEELING COLD [None]
  - HAEMATOCRIT DECREASED [None]
  - HAEMOGLOBIN DECREASED [None]
  - HYPOTENSION [None]
  - HYPOTHERMIA [None]
  - METABOLIC ACIDOSIS [None]
  - PLEURAL EFFUSION [None]
  - RENAL FAILURE ACUTE [None]
  - SEPSIS [None]
